FAERS Safety Report 17748673 (Version 1)
Quarter: 2020Q2

REPORT INFORMATION
  Report Type: Spontaneous
  Country: US (occurrence: US)
  Receive Date: 20200505
  Receipt Date: 20200505
  Transmission Date: 20200714
  Serious: No
  Sender: FDA-Public Use
  Company Number: US-ROCHE-2469367

PATIENT
  Age: 75 Year
  Sex: Female
  Weight: 62.65 kg

DRUGS (10)
  1. ESBRIET [Suspect]
     Active Substance: PIRFENIDONE
     Dosage: 2 PILLS THREE TIMES A DAY ;ONGOING: NO
     Route: 048
  2. ESBRIET [Suspect]
     Active Substance: PIRFENIDONE
     Dosage: 2 PILLS THREE TIMES A DAY ;ONGOING: NO
     Route: 048
     Dates: start: 20191029
  3. WARFIN [Concomitant]
     Active Substance: WARFARIN
     Route: 048
  4. HYDROCHLOORTHIAZIDE [Concomitant]
     Active Substance: HYDROCHLOROTHIAZIDE
     Route: 048
  5. NP THYROID [Concomitant]
     Active Substance: LEVOTHYROXINE\LIOTHYRONINE
     Route: 048
  6. ASPIRIN [ACETYLSALICYLIC ACID] [Concomitant]
     Active Substance: ASPIRIN
  7. ADDERALL [Concomitant]
     Active Substance: AMPHETAMINE ASPARTATE\AMPHETAMINE SULFATE\DEXTROAMPHETAMINE SACCHARATE\DEXTROAMPHETAMINE SULFATE
     Route: 048
  8. ESBRIET [Suspect]
     Active Substance: PIRFENIDONE
     Indication: IDIOPATHIC PULMONARY FIBROSIS
     Dosage: 1 PILL THREE TIMES A DAY ;ONGOING: NO
     Route: 048
     Dates: start: 20191010
  9. ESBRIET [Suspect]
     Active Substance: PIRFENIDONE
     Dosage: 3 PILLS THREE TIMES A DAY ;ONGOING: NO
     Route: 048
     Dates: start: 20191024
  10. SPIRONOLACTONE. [Concomitant]
     Active Substance: SPIRONOLACTONE
     Route: 048

REACTIONS (5)
  - Pruritus [Not Recovered/Not Resolved]
  - Abdominal pain [Not Recovered/Not Resolved]
  - Urticaria [Not Recovered/Not Resolved]
  - Urticaria [Recovered/Resolved]
  - Diarrhoea [Recovered/Resolved]

NARRATIVE: CASE EVENT DATE: 20191103
